FAERS Safety Report 9635720 (Version 2)
Quarter: 2014Q1

REPORT INFORMATION
  Report Type: Report from Study
  Country: RU (occurrence: RU)
  Receive Date: 20131021
  Receipt Date: 20140203
  Transmission Date: 20141002
  Serious: Yes (Hospitalization)
  Sender: FDA-Public Use
  Company Number: RU-VIIV HEALTHCARE LIMITED-B0932268A

PATIENT
  Age: 0 Day
  Sex: Male

DRUGS (5)
  1. KIVEXA [Suspect]
     Indication: HIV INFECTION
     Dosage: 1TAB PER DAY
     Route: 064
     Dates: start: 20120519
  2. RILPIVIRINE [Suspect]
     Indication: HIV INFECTION
     Dosage: 25MG PER DAY
     Route: 064
     Dates: start: 20081218, end: 20121025
  3. TRUVADA [Suspect]
     Indication: HIV INFECTION
     Dosage: 1U PER DAY
     Route: 064
     Dates: start: 20081218, end: 20121025
  4. KALETRA [Concomitant]
     Indication: HIV INFECTION
     Dosage: 2U PER DAY
     Route: 064
     Dates: start: 20121026
  5. EPZICOM [Concomitant]
     Indication: HIV INFECTION
     Route: 064

REACTIONS (2)
  - Neonatal asphyxia [Recovered/Resolved]
  - Foetal exposure during pregnancy [Unknown]
